FAERS Safety Report 9407692 (Version 1)
Quarter: 2013Q3

REPORT INFORMATION
  Report Type: Spontaneous
  Country: US (occurrence: US)
  Receive Date: 20130718
  Receipt Date: 20130718
  Transmission Date: 20140515
  Serious: No
  Sender: FDA-Public Use
  Company Number: US-PFIZER INC-2013210514

PATIENT
  Age: 64 Year
  Sex: Female
  Weight: 50.79 kg

DRUGS (3)
  1. CELEBREX [Suspect]
     Indication: RHEUMATOID ARTHRITIS
     Dosage: 200 MG, 2X/DAY
     Dates: end: 20130713
  2. ORENCIA [Suspect]
     Indication: RHEUMATOID ARTHRITIS
     Dosage: UNK, MONTHLY
  3. ALEVE [Suspect]
     Indication: PAIN
     Dosage: UNK

REACTIONS (4)
  - Drug ineffective [Unknown]
  - Arthritis [Unknown]
  - Local swelling [Unknown]
  - Pain [Unknown]
